FAERS Safety Report 8773327 (Version 2)
Quarter: 2012Q4

REPORT INFORMATION
  Report Type: Report from Study
  Country: CH (occurrence: CH)
  Receive Date: 20120907
  Receipt Date: 20121211
  Transmission Date: 20130627
  Serious: Yes (Hospitalization)
  Sender: FDA-Public Use
  Company Number: CH-GILEAD-2012-0060492

PATIENT
  Age: 48 Year
  Sex: Male

DRUGS (2)
  1. ELVITEGRAVIR/EMTRICITABINE/TENOFOVIR DF/COBICISTAT [Suspect]
     Indication: HIV INFECTION
     Dosage: 1 DF, QD
     Route: 048
     Dates: start: 20120509
  2. BLOPRESS PLUS [Concomitant]
     Indication: HYPERTENSION
     Dosage: UNK
     Dates: start: 20090616

REACTIONS (1)
  - Diverticulitis [Recovered/Resolved]
